FAERS Safety Report 7527728-9 (Version None)
Quarter: 2011Q2

REPORT INFORMATION
  Report Type: 
  Country: None (occurrence: None)
  Receive Date: 20110512
  Receipt Date: 20110406
  Transmission Date: 20111010
  Serious: No
  Sender: FDA-Public Use
  Company Number: 1000019947

PATIENT
  Age: 52 Year
  Sex: Female

DRUGS (8)
  1. TRAZODONE (TRAZODONE) (TRAZODONE) [Concomitant]
  2. ACIPHEX (RABEPRAZOLE SODIUM) (RABEPRAZOLE SODIUM) [Concomitant]
  3. SAVELLA [Suspect]
     Indication: FIBROMYALGIA
     Dosage: SEE IMAGE
     Route: 048
     Dates: start: 20110405
  4. SAVELLA [Suspect]
     Indication: FIBROMYALGIA
     Dosage: SEE IMAGE
     Route: 048
     Dates: start: 20110330, end: 20110331
  5. SAVELLA [Suspect]
     Indication: FIBROMYALGIA
     Dosage: SEE IMAGE
     Route: 048
     Dates: start: 20110329, end: 20110329
  6. SAVELLA [Suspect]
     Indication: FIBROMYALGIA
     Dosage: SEE IMAGE
     Route: 048
     Dates: start: 20110401, end: 20110404
  7. AMBIEN [Concomitant]
  8. SEROQUEL (QUETIAPINE) (QUETIAPINE) [Concomitant]

REACTIONS (6)
  - PRURITUS [None]
  - DRY SKIN [None]
  - ERYTHEMA [None]
  - HYPERSENSITIVITY [None]
  - SKIN EXFOLIATION [None]
  - PAIN OF SKIN [None]
